FAERS Safety Report 8485457-1 (Version None)
Quarter: 2012Q2

REPORT INFORMATION
  Report Type: 
  Country: None (occurrence: None)
  Receive Date: 20120627
  Receipt Date: 20120627
  Transmission Date: 20120825
  Serious: Yes (Hospitalization)
  Sender: FDA-Public Use
  Company Number: None

PATIENT
  Sex: Male
  Weight: 80.6 kg

DRUGS (1)
  1. GEODON [Suspect]
     Indication: AGITATION
     Dosage: 10MG ONCE IM
     Route: 030

REACTIONS (6)
  - BRADYCARDIA [None]
  - AGGRESSION [None]
  - OXYGEN SATURATION DECREASED [None]
  - BLOOD PRESSURE DECREASED [None]
  - HOMICIDAL IDEATION [None]
  - SUICIDAL BEHAVIOUR [None]
